FAERS Safety Report 5443104-7 (Version None)
Quarter: 2007Q3

REPORT INFORMATION
  Report Type: 
  Country: None (occurrence: None)
  Receive Date: 20070905
  Receipt Date: 20070828
  Transmission Date: 20080115
  Serious: Yes (Other)
  Sender: FDA-Public Use
  Company Number: US-AMGEN-US229799

PATIENT
  Sex: Female

DRUGS (5)
  1. ARANESP [Suspect]
     Indication: RENAL FAILURE CHRONIC
     Route: 065
     Dates: start: 20020214, end: 20070411
  2. PROGRAF [Concomitant]
     Route: 065
     Dates: start: 19940101
  3. PREDNISONE [Concomitant]
     Route: 065
     Dates: start: 19940101
  4. CELLCEPT [Concomitant]
     Dates: start: 20000101
  5. NIFEDIPINE [Concomitant]
     Route: 065

REACTIONS (1)
  - APLASIA PURE RED CELL [None]
